FAERS Safety Report 16119778 (Version 1)
Quarter: 2019Q1

REPORT INFORMATION
  Report Type: Spontaneous
  Country: IN (occurrence: IN)
  Receive Date: 20190326
  Receipt Date: 20190326
  Transmission Date: 20190418
  Serious: Yes (Other)
  Sender: FDA-Public Use
  Company Number: IN-PFIZER INC-2018367383

PATIENT
  Age: 66 Year
  Sex: Male

DRUGS (1)
  1. SUTENT [Suspect]
     Active Substance: SUNITINIB MALATE
     Indication: METASTATIC RENAL CELL CARCINOMA
     Dosage: 50 MG, 2 WEEKS ON AND 1 WEEK OFF
     Route: 048
     Dates: start: 20180908

REACTIONS (10)
  - Pharyngeal ulceration [Unknown]
  - Pharyngitis [Unknown]
  - Gastric infection [Unknown]
  - Mouth ulceration [Unknown]
  - Dry skin [Unknown]
  - Back pain [Unknown]
  - Dysphagia [Unknown]
  - Skin exfoliation [Unknown]
  - Dysgeusia [Unknown]
  - Anal infection [Unknown]

NARRATIVE: CASE EVENT DATE: 2018
